FAERS Safety Report 7184851-9 (Version None)
Quarter: 2010Q4

REPORT INFORMATION
  Report Type: 
  Country: None (occurrence: None)
  Receive Date: 20101222
  Receipt Date: 20101214
  Transmission Date: 20110411
  Serious: Yes (Other)
  Sender: FDA-Public Use
  Company Number: JP-ASTRAZENECA-2010SE54631

PATIENT
  Age: 62 Year
  Sex: Female
  Weight: 36 kg

DRUGS (17)
  1. IRESSA [Suspect]
     Indication: LUNG ADENOCARCINOMA
     Route: 048
     Dates: start: 20090314, end: 20090327
  2. IRESSA [Suspect]
     Route: 048
     Dates: start: 20090328, end: 20101110
  3. DEPAKENE [Suspect]
     Indication: CONVULSION
     Route: 048
     Dates: start: 20091202, end: 20101110
  4. HYPEN [Concomitant]
     Indication: PAIN
     Route: 048
     Dates: start: 20090202, end: 20091110
  5. NOVAMIN [Concomitant]
     Indication: VOMITING
     Route: 048
     Dates: start: 20090202, end: 20090602
  6. MUCOSTA [Concomitant]
     Indication: GASTRITIS
     Route: 048
     Dates: start: 20090207, end: 20090602
  7. OMEPRAL [Concomitant]
     Indication: GASTRIC ULCER
     Route: 048
     Dates: start: 20090213, end: 20091110
  8. ALFAROL [Concomitant]
     Indication: OSTEOPOROSIS
     Route: 048
     Dates: start: 20090213, end: 20101110
  9. LIPITOR [Concomitant]
     Indication: HYPERLIPIDAEMIA
     Route: 048
     Dates: start: 20090213, end: 20090602
  10. DEPAS [Concomitant]
     Indication: BALANCE DISORDER
     Route: 048
     Dates: start: 20090221, end: 20101110
  11. MOBIC [Concomitant]
     Indication: PAIN
     Route: 048
     Dates: start: 20090307, end: 20090530
  12. DUROTEP [Concomitant]
     Indication: PAIN
     Route: 062
     Dates: start: 20090329, end: 20101110
  13. HERCEPTIN [Concomitant]
     Indication: BREAST CANCER
     Dosage: DOSE UNKNOWN
     Route: 041
     Dates: start: 20090416, end: 20091210
  14. GASMOTIN [Concomitant]
     Indication: ABDOMINAL PAIN
     Route: 048
     Dates: start: 20090513, end: 20090602
  15. NAUZELIN [Concomitant]
     Route: 048
  16. LASIX [Concomitant]
     Route: 048
  17. VESICARE [Concomitant]
     Route: 048

REACTIONS (4)
  - ALTERED STATE OF CONSCIOUSNESS [None]
  - LIVER DISORDER [None]
  - PNEUMONIA [None]
  - RENAL FAILURE [None]
